FAERS Safety Report 18532009 (Version 3)
Quarter: 2021Q1

REPORT INFORMATION
  Report Type: Report from Study
  Country: US (occurrence: US)
  Receive Date: 20201123
  Receipt Date: 20210121
  Transmission Date: 20210419
  Serious: No
  Sender: FDA-Public Use
  Company Number: NVSC2020US303539

PATIENT
  Age: 49 Year
  Sex: Female

DRUGS (2)
  1. ENTRESTO [Suspect]
     Active Substance: SACUBITRIL\VALSARTAN
     Indication: PRODUCT USED FOR UNKNOWN INDICATION
     Dosage: UNK UNK, UNKNOWN
     Route: 065
     Dates: start: 20200811
  2. BABY ASPIRIN [Concomitant]
     Active Substance: ASPIRIN
     Indication: PRODUCT USED FOR UNKNOWN INDICATION
     Dosage: UNK UNK, UNKNOWN
     Route: 065

REACTIONS (14)
  - Heart rate increased [Unknown]
  - Dizziness [Unknown]
  - Feeling abnormal [Unknown]
  - Product dose omission in error [Recovered/Resolved]
  - Taste disorder [Unknown]
  - Liver disorder [Unknown]
  - Primary biliary cholangitis [Unknown]
  - Oropharyngeal discomfort [Unknown]
  - Confusional state [Unknown]
  - Blood pressure abnormal [Unknown]
  - Fear [Unknown]
  - Respiration abnormal [Unknown]
  - Sinus disorder [Unknown]
  - Product administration error [Unknown]

NARRATIVE: CASE EVENT DATE: 20200825
